FAERS Safety Report 5787043-0 (Version None)
Quarter: 2008Q2

REPORT INFORMATION
  Report Type: 
  Country: None (occurrence: None)
  Receive Date: 20080618
  Receipt Date: 20070618
  Transmission Date: 20081010
  Serious: Yes (Other)
  Sender: FDA-Public Use
  Company Number: 200619700US

PATIENT
  Age: 64 Year
  Sex: Male
  Weight: 59 kg

DRUGS (9)
  1. LANTUS [Suspect]
     Indication: TYPE 1 DIABETES MELLITUS
     Dosage: 12 U
     Dates: start: 20030101
  2. LANTUS [Suspect]
     Indication: TYPE 1 DIABETES MELLITUS
     Dosage: 13 U HS
  3. OPTICLIK [Suspect]
  4. NOVOLOG [Concomitant]
  5. ALPHA LIPOIC ACID [Concomitant]
  6. PYRIDOXINE HYDROCHLORIDE (B6) [Concomitant]
  7. VITAMIN-B-KMOPLEX STANDARD (VIT B COMPLEX) POTASSIUM CITRATE [Concomitant]
  8. CALCIUM [Concomitant]
  9. TOCOPHERYL ACETATE (VITAMIN E) [Concomitant]

REACTIONS (1)
  - HYPOGLYCAEMIA [None]
